FAERS Safety Report 15154164 (Version 1)
Quarter: 2018Q3

REPORT INFORMATION
  Report Type: Spontaneous
  Country: DE (occurrence: DE)
  Receive Date: 20180717
  Receipt Date: 20180717
  Transmission Date: 20181010
  Serious: Yes (Hospitalization, Other)
  Sender: FDA-Public Use
  Company Number: DE-SA-2018SA183980

PATIENT
  Age: 43 Year
  Sex: Female

DRUGS (3)
  1. LEMTRADA [Suspect]
     Active Substance: ALEMTUZUMAB
     Indication: MULTIPLE SCLEROSIS
     Dosage: 12 MG
     Route: 041
     Dates: start: 20150323, end: 20150327
  2. LEMTRADA [Suspect]
     Active Substance: ALEMTUZUMAB
     Dosage: 12 UNK
     Route: 041
     Dates: start: 20160321, end: 20160323
  3. LEMTRADA [Suspect]
     Active Substance: ALEMTUZUMAB
     Dosage: 12 UNK
     Route: 041
     Dates: start: 20170613, end: 20170615

REACTIONS (26)
  - Night sweats [Recovering/Resolving]
  - Vitiligo [Unknown]
  - Hypercoagulation [Unknown]
  - Urinary tract infection [Unknown]
  - Deep vein thrombosis [Unknown]
  - Chest pain [Unknown]
  - Influenza [Unknown]
  - Memory impairment [Unknown]
  - Urinary incontinence [Unknown]
  - Gait disturbance [Unknown]
  - Renal failure [Unknown]
  - Blood creatinine increased [Recovering/Resolving]
  - Disturbance in attention [Unknown]
  - Bronchitis [Unknown]
  - Micturition urgency [Unknown]
  - Pyrexia [Unknown]
  - Epilepsy [Recovered/Resolved]
  - Pulmonary embolism [Not Recovered/Not Resolved]
  - Fibrin D dimer increased [Unknown]
  - Cough [Unknown]
  - Pain in extremity [Unknown]
  - Sialoadenitis [Unknown]
  - Dyspnoea exertional [Unknown]
  - Autoimmune thyroiditis [Unknown]
  - Glomerular filtration rate decreased [Recovering/Resolving]
  - Pigmentation disorder [Unknown]

NARRATIVE: CASE EVENT DATE: 201704
